FAERS Safety Report 4705579-8 (Version None)
Quarter: 2005Q2

REPORT INFORMATION
  Report Type: 
  Country: None (occurrence: None)
  Receive Date: 20050629
  Receipt Date: 20040713
  Transmission Date: 20051028
  Serious: Yes (Hospitalization)
  Sender: FDA-Public Use
  Company Number: 200412167EU

PATIENT
  Age: 64 Year
  Sex: Female
  Weight: 65 kg

DRUGS (3)
  1. FLUOROURACIL [Suspect]
     Indication: BREAST CANCER
     Dosage: 820 MG
     Dates: start: 20040526, end: 20040526
  2. EPIRUBICIN [Suspect]
     Indication: BREAST CANCER
     Dosage: 164 MG
     Dates: start: 20040526, end: 20040526
  3. CYCLOPHOSPHAMIDE [Suspect]
     Indication: BREAST CANCER
     Dosage: 820 MG
     Dates: start: 20040526, end: 20040526

REACTIONS (2)
  - BRONCHOPULMONARY ASPERGILLOSIS [None]
  - SPUTUM CULTURE POSITIVE [None]
